FAERS Safety Report 10615724 (Version 1)
Quarter: 2014Q4

REPORT INFORMATION
  Report Type: Spontaneous
  Country: US (occurrence: None)
  Receive Date: 20141125
  Receipt Date: 20141125
  Transmission Date: 20150529
  Serious: Yes (Life-Threatening)
  Sender: FDA-Public Use
  Company Number: None

PATIENT
  Age: 54 Year
  Sex: Female
  Weight: 76.66 kg

DRUGS (1)
  1. NITROFURANTOIN MONOHYDRATE/MACROCRYSTALS [Suspect]
     Active Substance: NITROFURANTOIN\NITROFURANTOIN MONOHYDRATE
     Indication: URINARY TRACT INFECTION
     Dosage: 1 PILL  TWICE DAILY  TAKEN BY MOUTH
     Route: 048
     Dates: start: 20141120, end: 20141123

REACTIONS (19)
  - Blood pressure decreased [None]
  - Pyrexia [None]
  - Seizure like phenomena [None]
  - Myalgia [None]
  - Night sweats [None]
  - Metabolic disorder [None]
  - Food aversion [None]
  - Blister [None]
  - Decreased appetite [None]
  - Influenza [None]
  - Swelling face [None]
  - Headache [None]
  - Loss of consciousness [None]
  - Chills [None]
  - Dyskinesia [None]
  - Arthralgia [None]
  - Eye swelling [None]
  - Painful respiration [None]
  - Liver function test abnormal [None]

NARRATIVE: CASE EVENT DATE: 20141120
